FAERS Safety Report 5266075-5 (Version None)
Quarter: 2007Q1

REPORT INFORMATION
  Report Type: 
  Country: None (occurrence: None)
  Receive Date: 20070315
  Receipt Date: 20070309
  Transmission Date: 20070707
  Serious: Yes (Hospitalization, Other)
  Sender: FDA-Public Use
  Company Number: IN-BRISTOL-MYERS SQUIBB COMPANY-13709209

PATIENT
  Age: 18 Year
  Sex: Female

DRUGS (4)
  1. CYCLOPHOSPHAMIDE [Suspect]
     Indication: OVARIAN NEOPLASM
     Route: 041
  2. DOXORUBICIN HCL [Suspect]
     Indication: OVARIAN NEOPLASM
     Route: 041
  3. CARBOPLATIN [Suspect]
     Indication: OVARIAN NEOPLASM
     Route: 041
  4. BLEOMYCIN SULFATE [Suspect]
     Indication: PLEURODESIS

REACTIONS (1)
  - CHYLOTHORAX [None]
